FAERS Safety Report 24595897 (Version 1)
Quarter: 2024Q4

REPORT INFORMATION
  Report Type: Spontaneous
  Country: CA (occurrence: CA)
  Receive Date: 20241109
  Receipt Date: 20241109
  Transmission Date: 20250115
  Serious: Yes (Other)
  Sender: CELLTRION
  Company Number: CA-PFIZER INC-202400240181

PATIENT

DRUGS (9)
  1. INFLECTRA [Suspect]
     Active Substance: INFLIXIMAB-DYYB
     Indication: Psoriatic arthropathy
     Dosage: 323 MG, INDUCTION DOSES AT WEEK 0, 2, 6, THEN EVERY 4 WEEKS FOR 3 MONTHS, THEN EVERY 6 WEEKS
     Route: 042
     Dates: start: 20240917
  2. INFLECTRA [Suspect]
     Active Substance: INFLIXIMAB-DYYB
     Indication: Psoriasis
  3. INFLECTRA [Suspect]
     Active Substance: INFLIXIMAB-DYYB
     Indication: Uveitis
  4. CELEBREX [Concomitant]
     Active Substance: CELECOXIB
     Dosage: UNK
  5. CELECOXIB [Concomitant]
     Active Substance: CELECOXIB
     Dosage: 10 MG (1 DF), DAILY
  6. FOLIC ACID [Concomitant]
     Active Substance: FOLIC ACID
     Dosage: 5 MG (1 DF), 3X/DAY
  7. METHOTREXATE [Concomitant]
     Active Substance: METHOTREXATE
     Dosage: 20 MG (1 DF), WEEKLY
     Route: 058
  8. PANTOPRAZOLE SODIUM [Concomitant]
     Active Substance: PANTOPRAZOLE SODIUM
     Dosage: 40 MG (1 DF), DAILY
  9. PREDNISOLONE ACETATE [Concomitant]
     Active Substance: PREDNISOLONE ACETATE
     Dosage: 1 DF, EVERY 2 HOURS BOTH EYES

REACTIONS (9)
  - Pericardial effusion [Unknown]
  - Suspected COVID-19 [Recovering/Resolving]
  - Malaise [Unknown]
  - Chills [Recovering/Resolving]
  - Pain [Recovering/Resolving]
  - Pharyngitis streptococcal [Recovering/Resolving]
  - Atelectasis [Unknown]
  - Anaemia [Unknown]
  - Off label use [Unknown]

NARRATIVE: CASE EVENT DATE: 20240101
